FAERS Safety Report 11857004 (Version 5)
Quarter: 2024Q4

REPORT INFORMATION
  Report Type: Spontaneous
  Country: ES (occurrence: ES)
  Receive Date: 20151221
  Receipt Date: 20241121
  Transmission Date: 20250114
  Serious: Yes (Hospitalization, Other)
  Sender: GALDERMA
  Company Number: None

PATIENT

DRUGS (20)
  1. CLOBETASOL PROPIONATE [Interacting]
     Active Substance: CLOBETASOL PROPIONATE
     Indication: Product used for unknown indication
     Dosage: 1 DOSAGE FORM, UNK,
     Route: 061
  2. HYDROCORTISONE [Interacting]
     Active Substance: HYDROCORTISONE
     Indication: Erythrodermic psoriasis
     Dosage: 1 DOSAGE FORM, UNK,
     Route: 061
  3. HYDROCHLOROTHIAZIDE [Interacting]
     Active Substance: HYDROCHLOROTHIAZIDE
     Indication: Chronic kidney disease
     Dosage: 25 MILLIGRAM, UNK,FREQUENCY TIME: 1;UNIT: DAYS
     Route: 065
  4. OMEPRAZOLE [Interacting]
     Active Substance: OMEPRAZOLE
     Indication: Product used for unknown indication
     Dosage: 20 MILLIGRAM, UNK,FREQUENCY TIME: 1;UNIT: DAYS
     Route: 065
  5. ALPRAZOLAM [Interacting]
     Active Substance: ALPRAZOLAM
     Indication: Disorientation
     Dosage: 1 DOSAGE FORM, UNK,
     Route: 065
  6. ALPRAZOLAM [Interacting]
     Active Substance: ALPRAZOLAM
     Indication: Euphoric mood
  7. PREDNISONE [Interacting]
     Active Substance: PREDNISONE
     Indication: Erythrodermic psoriasis
     Dosage: 0.5 MILLIGRAM/KILOGRAM, UNK,FREQUENCY TIME: 1;UNIT: DAYS
     Route: 048
  8. METHYLPREDNISOLONE ACEPONATE [Interacting]
     Active Substance: METHYLPREDNISOLONE ACEPONATE
     Indication: Erythrodermic psoriasis
     Dosage: 1 DOSAGE FORM, UNK,
     Route: 061
  9. METHOTREXATE [Interacting]
     Active Substance: METHOTREXATE
     Indication: Product used for unknown indication
     Dosage: 2.5 MILLIGRAM, UNK,FREQUENCY TIME: 1;UNIT: WEEKS
     Route: 065
  10. RAMIPRIL [Interacting]
     Active Substance: RAMIPRIL
     Indication: Product used for unknown indication
     Dosage: 5 MILLIGRAM, UNK,FREQUENCY TIME: 1;UNIT: DAYS
     Route: 065
  11. ACENOCOUMAROL [Interacting]
     Active Substance: ACENOCOUMAROL
     Indication: Product used for unknown indication
     Dosage: 1 MILLIGRAM, UNK,FREQUENCY TIME: 1;UNIT: DAYS
     Route: 065
  12. BISOPROLOL [Interacting]
     Active Substance: BISOPROLOL
     Indication: Product used for unknown indication
     Dosage: 5 MILLIGRAM, UNK,FREQUENCY TIME: 1;UNIT: DAYS
     Route: 065
  13. CLORAZEPATE DIPOTASSIUM [Interacting]
     Active Substance: CLORAZEPATE DIPOTASSIUM
     Indication: Product used for unknown indication
     Dosage: 5 MILLIGRAM, UNK,FREQUENCY TIME: 1;UNIT: DAYS
     Route: 065
  14. DIGOXIN [Interacting]
     Active Substance: DIGOXIN
     Indication: Atrial fibrillation
     Dosage: 0.125 MILLIGRAM, UNK,FREQUENCY TIME: 1;UNIT: DAYS
     Route: 065
  15. DIGOXIN [Interacting]
     Active Substance: DIGOXIN
     Indication: Cardiac failure congestive
  16. DILTIAZEM [Interacting]
     Active Substance: DILTIAZEM
     Indication: Product used for unknown indication
     Dosage: 120 MILLIGRAM, UNK,FREQUENCY TIME: 1;UNIT: DAYS
     Route: 065
  17. ENOXAPARIN [Interacting]
     Active Substance: ENOXAPARIN
     Indication: Product used for unknown indication
     Dosage: 40 MILLIGRAM, UNK,FREQUENCY TIME: 1;UNIT: DAYS
     Route: 065
  18. FUROSEMIDE [Interacting]
     Active Substance: FUROSEMIDE
     Indication: Chronic kidney disease
     Dosage: 60 MILLIGRAM, UNK,FREQUENCY TIME: 1;UNIT: DAYS
     Route: 065
  19. FOLIC ACID [Concomitant]
     Active Substance: FOLIC ACID
     Indication: Prophylaxis
     Dosage: 5 MILLIGRAM, UNK,FREQUENCY TIME: 1;UNIT: WEEKS
     Route: 065
  20. INSULIN NOS [Concomitant]
     Active Substance: INSULIN NOS
     Indication: Product used for unknown indication
     Dosage: 100 INTERNATIONAL UNIT, UNK,FREQUENCY TIME: 1;UNIT: DAYS
     Route: 065

REACTIONS (10)
  - Erythrodermic psoriasis [Recovered/Resolved]
  - Disorientation [Unknown]
  - Euphoric mood [Unknown]
  - Somnolence [Unknown]
  - Stupor [Unknown]
  - Erythema [Recovered/Resolved]
  - Condition aggravated [Recovered/Resolved]
  - Transaminases increased [Recovering/Resolving]
  - Toxicity to various agents [Recovered/Resolved]
  - Drug interaction [Recovering/Resolving]
